FAERS Safety Report 25358922 (Version 4)
Quarter: 2025Q3

REPORT INFORMATION
  Report Type: Spontaneous
  Country: US (occurrence: US)
  Receive Date: 20250526
  Receipt Date: 20250905
  Transmission Date: 20251020
  Serious: No
  Sender: NOVARTIS
  Company Number: US-002147023-NVSC2025US082690

PATIENT
  Age: 37 Year
  Sex: Female

DRUGS (1)
  1. KESIMPTA [Suspect]
     Active Substance: OFATUMUMAB
     Indication: Product used for unknown indication
     Dosage: UNK, QMO (20 MG/ 0.4 ML) (INJECTION)
     Route: 065
     Dates: start: 202304

REACTIONS (5)
  - Accidental exposure to product [Unknown]
  - Skin burning sensation [Unknown]
  - Drug dose omission by device [Unknown]
  - Device leakage [Unknown]
  - Wrong technique in product usage process [Unknown]

NARRATIVE: CASE EVENT DATE: 20250511
